FAERS Safety Report 9688228 (Version 2)
Quarter: 2013Q4

REPORT INFORMATION
  Report Type: Spontaneous
  Country: US (occurrence: None)
  Receive Date: 20131112
  Receipt Date: 20131115
  Transmission Date: 20140711
  Serious: Yes (Other)
  Sender: FDA-Public Use
  Company Number: ADR-2013-02057

PATIENT
  Sex: Male

DRUGS (2)
  1. BACLOFEN [Suspect]
     Indication: MUSCLE SPASTICITY
     Dosage: DAY
  2. HORMONAL DRUGS [Suspect]

REACTIONS (11)
  - Epilepsy [None]
  - Device alarm issue [None]
  - Acquired claw toe [None]
  - Withdrawal syndrome [None]
  - Vertigo [None]
  - Muscle spasticity [None]
  - Muscular weakness [None]
  - Fatigue [None]
  - Hypersomnia [None]
  - Therapeutic response decreased [None]
  - Nausea [None]
